FAERS Safety Report 16392070 (Version 1)
Quarter: 2019Q2

REPORT INFORMATION
  Report Type: Spontaneous
  Country: US (occurrence: US)
  Receive Date: 20190605
  Receipt Date: 20190605
  Transmission Date: 20190711
  Serious: No
  Sender: FDA-Public Use
  Company Number: US-ROCHE-2243389

PATIENT
  Sex: Male
  Weight: 90.8 kg

DRUGS (5)
  1. TRAMADOL. [Concomitant]
     Active Substance: TRAMADOL
     Indication: FATIGUE
     Dosage: 75 MCG UP TO 3 TIMES A DAY ;ONGOING: YES
     Route: 065
  2. OCREVUS [Suspect]
     Active Substance: OCRELIZUMAB
     Indication: MULTIPLE SCLEROSIS RELAPSE
     Dosage: ONGOING: YES
     Route: 065
     Dates: start: 20181107
  3. OCREVUS [Suspect]
     Active Substance: OCRELIZUMAB
     Dosage: SECOND TREATMENT
     Route: 065
     Dates: start: 20181121
  4. DICLOFENAC [Concomitant]
     Active Substance: DICLOFENAC
     Dosage: 50 MCG UP TO THREE TIMES A DAY ;ONGOING: YES
     Route: 065
  5. LYRICA [Concomitant]
     Active Substance: PREGABALIN
     Indication: PAIN
     Dosage: ONGOING: YES
     Route: 065

REACTIONS (1)
  - Cyst [Not Recovered/Not Resolved]
